FAERS Safety Report 6072122-3 (Version None)
Quarter: 2009Q1

REPORT INFORMATION
  Report Type: 
  Country: None (occurrence: None)
  Receive Date: 20090210
  Receipt Date: 20090203
  Transmission Date: 20090719
  Serious: Yes (Other)
  Sender: FDA-Public Use
  Company Number: US-ELI_LILLY_AND_COMPANY-US200902000605

PATIENT
  Sex: Female

DRUGS (2)
  1. HUMALOG [Suspect]
  2. GLUCAGON [Suspect]
     Indication: BLOOD GLUCOSE DECREASED
     Dosage: 1 MG, AS NEEDED
     Dates: start: 20090203, end: 20090203

REACTIONS (6)
  - DYSPNOEA [None]
  - ERYTHEMA [None]
  - EXPIRED DRUG ADMINISTERED [None]
  - HYPOGLYCAEMIC UNCONSCIOUSNESS [None]
  - HYPOKINESIA [None]
  - THERAPEUTIC RESPONSE DELAYED [None]
